FAERS Safety Report 11638394 (Version 2)
Quarter: 2015Q4

REPORT INFORMATION
  Report Type: Report from Study
  Country: AR (occurrence: AR)
  Receive Date: 20151016
  Receipt Date: 20151229
  Transmission Date: 20160304
  Serious: Yes (Hospitalization, Other)
  Sender: FDA-Public Use
  Company Number: AR-BRISTOL-MYERS SQUIBB COMPANY-BMS-2015-067935

PATIENT
  Age: 72 Year
  Sex: Male

DRUGS (1)
  1. ABATACEPT [Suspect]
     Active Substance: ABATACEPT
     Indication: RHEUMATOID ARTHRITIS
     Dosage: UNK, QMO
     Route: 042
     Dates: start: 20150729

REACTIONS (5)
  - Gastrointestinal haemorrhage [Recovering/Resolving]
  - Peripheral swelling [Recovering/Resolving]
  - Surgery [Unknown]
  - Drug ineffective [Unknown]
  - Polyp [Recovering/Resolving]

NARRATIVE: CASE EVENT DATE: 20151005
